FAERS Safety Report 4708841-8 (Version None)
Quarter: 2005Q3

REPORT INFORMATION
  Report Type: 
  Country: None (occurrence: None)
  Receive Date: 20050705
  Receipt Date: 20050623
  Transmission Date: 20060218
  Serious: Yes (Hospitalization, Other)
  Sender: FDA-Public Use
  Company Number: 2005-06-1609

PATIENT
  Age: 50 Year
  Sex: Female

DRUGS (9)
  1. PEG-INTRON [Suspect]
     Indication: HEPATITIS C
     Dosage: 100 MCG QW SUBCUTANEOUS
     Route: 058
     Dates: start: 20040524, end: 20050424
  2. REBETOL [Suspect]
     Indication: HEPATITIS C
     Dosage: 800 MG QD ORAL
     Route: 048
     Dates: start: 20040524, end: 20050424
  3. CIPRAMIL [Concomitant]
  4. BUMETANIDE [Concomitant]
  5. PROTHIADEN [Concomitant]
  6. CLOZAN [Concomitant]
  7. DAFALGAN [Concomitant]
  8. ROMILAR SYRUP [Concomitant]
  9. LYSANXIA [Concomitant]

REACTIONS (7)
  - ANXIETY [None]
  - CHRONIC FATIGUE SYNDROME [None]
  - DEPRESSION [None]
  - DISEASE RECURRENCE [None]
  - FAMILY STRESS [None]
  - PERSONALITY DISORDER [None]
  - WEIGHT DECREASED [None]
